FAERS Safety Report 10718425 (Version 1)
Quarter: 2015Q1

REPORT INFORMATION
  Report Type: Spontaneous
  Country: KP (occurrence: KP)
  Receive Date: 20150119
  Receipt Date: 20150119
  Transmission Date: 20150721
  Serious: Yes (Death)
  Sender: FDA-Public Use
  Company Number: KP-CIPLA LTD.-2015KP00327

PATIENT

DRUGS (2)
  1. ZIDOVUDINE. [Suspect]
     Active Substance: ZIDOVUDINE
     Indication: HIV INFECTION
     Dosage: UNK
  2. KOREAN RED GINSENG [Suspect]
     Active Substance: DIETARY SUPPLEMENT
     Indication: HIV INFECTION
     Dosage: UNK

REACTIONS (1)
  - Death [Fatal]
